FAERS Safety Report 9224623 (Version 3)
Quarter: 2013Q2

REPORT INFORMATION
  Report Type: Spontaneous
  Country: JP (occurrence: JP)
  Receive Date: 20130411
  Receipt Date: 20130515
  Transmission Date: 20140414
  Serious: Yes (Hospitalization)
  Sender: FDA-Public Use
  Company Number: JP-OTSUKA-JP-2012-16753

PATIENT
  Age: 93 Year
  Sex: Female
  Weight: 36 kg

DRUGS (6)
  1. SAMSCA [Suspect]
     Indication: OEDEMA PERIPHERAL
     Dosage: 7.5 MG MILLIGRAM(S), QD
     Route: 048
     Dates: start: 20120910, end: 20120920
  2. FLUITRAN [Concomitant]
     Indication: OEDEMA PERIPHERAL
     Dosage: 1 MG MILLIGRAM(S), QD
     Route: 048
     Dates: start: 20120909, end: 20120912
  3. AMLODIN [Concomitant]
     Indication: HYPERTENSION
     Dosage: 2.5 MG MILLIGRAM(S), QD
     Route: 048
     Dates: start: 20120909, end: 20120912
  4. WARFARIN [Concomitant]
     Indication: PROPHYLAXIS
     Dosage: 1.5 MG MILLIGRAM(S), QD
     Route: 048
     Dates: start: 20120909, end: 20120915
  5. GASTER D [Concomitant]
     Indication: GASTRITIS
     Dosage: 20 MG MILLIGRAM(S), QD
     Route: 048
     Dates: start: 20120909
  6. BAYASPIRIN [Concomitant]
     Indication: PROPHYLAXIS
     Dosage: 100 MG MILLIGRAM(S), QD
     Route: 048
     Dates: start: 20120909

REACTIONS (1)
  - Hypernatraemia [Recovered/Resolved]
